FAERS Safety Report 22087501 (Version 2)
Quarter: 2023Q1

REPORT INFORMATION
  Report Type: Spontaneous
  Country: IL (occurrence: IL)
  Receive Date: 20230313
  Receipt Date: 20230316
  Transmission Date: 20230418
  Serious: Yes (Hospitalization)
  Sender: FDA-Public Use
  Company Number: IL-NOVOPROD-1034742

PATIENT
  Sex: Female

DRUGS (1)
  1. RYBELSUS [Suspect]
     Active Substance: SEMAGLUTIDE
     Indication: Product used for unknown indication
     Dosage: UNK

REACTIONS (1)
  - Jaundice [Unknown]
